FAERS Safety Report 5198124-7 (Version None)
Quarter: 2007Q2

REPORT INFORMATION
  Report Type: 
  Country: None (occurrence: None)
  Receive Date: 20070104
  Receipt Date: 20070102
  Transmission Date: 20071010
  Serious: Yes (Death, Life-Threatening, Hospitalization)
  Sender: FDA-Public Use
  Company Number: IL-ROCHE-468147

PATIENT
  Age: 53 Year
  Sex: Male
  Weight: 86 kg

DRUGS (7)
  1. GANCICLOVIR SODIUM [Suspect]
     Indication: GLIOMA
     Dosage: FORM: INJECTION
     Route: 042
     Dates: start: 20061002, end: 20061004
  2. CEREPRO [Suspect]
     Indication: GLIOMA
     Dosage: ROUTE: INJECTION FORM: INJECT DOSE FREQUENCY: SINGLE 1X10 12 VP; REGIMEN # 1
     Route: 050
     Dates: start: 20060928, end: 20060928
  3. MANNITOL [Concomitant]
     Dosage: DRUG: MANNITOL 201
     Dates: start: 20060927
  4. DEXAMETHASONE [Concomitant]
     Dates: start: 20060921
  5. EPANUTIN [Concomitant]
     Dates: start: 20060922, end: 20061007
  6. FAMOTIDINE [Concomitant]
     Dates: start: 20060921, end: 20060928
  7. ENOXAPARIN SODIUM [Concomitant]
     Dates: start: 20060921

REACTIONS (3)
  - DYSPHASIA [None]
  - INFARCTION [None]
  - VEIN DISORDER [None]
